FAERS Safety Report 16915446 (Version 3)
Quarter: 2020Q1

REPORT INFORMATION
  Report Type: Report from Study
  Country: US (occurrence: US)
  Receive Date: 20191014
  Receipt Date: 20200131
  Transmission Date: 20200409
  Serious: Yes (Hospitalization)
  Sender: FDA-Public Use
  Company Number: US-ACTELION-A-NJ2019-185719

PATIENT
  Age: 49 Year
  Sex: Female
  Weight: 132.43 kg

DRUGS (6)
  1. ADEMPAS [Concomitant]
     Active Substance: RIOCIGUAT
  2. VELETRI [Suspect]
     Active Substance: EPOPROSTENOL
     Indication: PULMONARY HYPERTENSION
     Dosage: 14 NG/KG, PER MIN
     Route: 042
  3. VELETRI [Suspect]
     Active Substance: EPOPROSTENOL
     Dosage: 25 NG/KG, PER MIN
     Route: 042
  4. VELETRI [Suspect]
     Active Substance: EPOPROSTENOL
     Dosage: 10 NG/KG, PER MIN
     Route: 042
  5. VELETRI [Suspect]
     Active Substance: EPOPROSTENOL
     Dosage: 23 NG/KG, PER MIN
     Route: 042
  6. OPSUMIT [Suspect]
     Active Substance: MACITENTAN
     Indication: PULMONARY HYPERTENSION
     Dosage: 10 MG, QD
     Route: 048

REACTIONS (14)
  - Catheter site erythema [Unknown]
  - Vomiting [Unknown]
  - Weight decreased [Unknown]
  - Malaise [Recovering/Resolving]
  - Drug dose omission by device [Recovered/Resolved]
  - Catheter site rash [Unknown]
  - Cough [Unknown]
  - Nasopharyngitis [Unknown]
  - Respiratory tract infection viral [Unknown]
  - Device alarm issue [Recovered/Resolved]
  - Headache [Recovering/Resolving]
  - Device malfunction [Recovered/Resolved]
  - Catheter management [Recovered/Resolved]
  - Catheter site pruritus [Unknown]

NARRATIVE: CASE EVENT DATE: 201910
